FAERS Safety Report 5610820-3 (Version None)
Quarter: 2008Q1

REPORT INFORMATION
  Report Type: 
  Country: None (occurrence: None)
  Receive Date: 20080201
  Receipt Date: 20080125
  Transmission Date: 20080703
  Serious: Yes (Hospitalization)
  Sender: FDA-Public Use
  Company Number: CH-BAYER-200811754GPV

PATIENT
  Age: 78 Year
  Sex: Male

DRUGS (4)
  1. ASPIRIN [Suspect]
     Indication: MYOCARDIAL ISCHAEMIA
     Dosage: TOTAL DAILY DOSE: 100 MG  UNIT DOSE: 100 MG
     Route: 048
  2. MEFENAMIC ACID [Suspect]
     Indication: PROCEDURAL PAIN
     Route: 048
     Dates: start: 20071217, end: 20071219
  3. METOPROLOL TARTRATE [Concomitant]
     Indication: HYPERTENSION
     Route: 048
  4. AMLODIPINE [Concomitant]
     Indication: HYPERTENSION
     Dosage: TOTAL DAILY DOSE: 5 MG  UNIT DOSE: 5 MG
     Route: 048

REACTIONS (1)
  - GASTROINTESTINAL ULCER HAEMORRHAGE [None]
